FAERS Safety Report 25765886 (Version 1)
Quarter: 2025Q3

REPORT INFORMATION
  Report Type: Spontaneous
  Country: US (occurrence: US)
  Receive Date: 20250905
  Receipt Date: 20250905
  Transmission Date: 20251021
  Serious: No
  Sender: DOMPE FARMACEUTICI
  Company Number: US-FARMAPROD-202407-2589

PATIENT
  Age: 93 Year
  Sex: Male
  Weight: 67.22 kg

DRUGS (22)
  1. OXERVATE [Suspect]
     Active Substance: CENEGERMIN-BKBJ
     Indication: Neurotrophic keratopathy
     Route: 047
     Dates: start: 20240711
  2. OXERVATE [Suspect]
     Active Substance: CENEGERMIN-BKBJ
     Indication: Ulcerative keratitis
  3. OXERVATE [Suspect]
     Active Substance: CENEGERMIN-BKBJ
  4. OXERVATE [Suspect]
     Active Substance: CENEGERMIN-BKBJ
  5. LOTEMAX [Concomitant]
     Active Substance: LOTEPREDNOL ETABONATE
  6. GLUCOSAMINE-CHONDROITIN-D3 [Concomitant]
  7. FISH OIL [Concomitant]
     Active Substance: FISH OIL
  8. VITAMIN D3 [Concomitant]
     Active Substance: CHOLECALCIFEROL
  9. VALACYCLOVIR [Concomitant]
     Active Substance: VALACYCLOVIR HYDROCHLORIDE
  10. FAMOTIDINE [Concomitant]
     Active Substance: FAMOTIDINE
  11. PANTOPRAZOLE SODIUM [Concomitant]
     Active Substance: PANTOPRAZOLE SODIUM
  12. TESTOSTERONE [Concomitant]
     Active Substance: TESTOSTERONE
  13. COSOPT PF [Concomitant]
     Active Substance: DORZOLAMIDE HYDROCHLORIDE\TIMOLOL MALEATE
     Dosage: 2%-0.5 %
  14. ROCKLATAN [Concomitant]
     Active Substance: LATANOPROST\NETARSUDIL MESYLATE
  15. ROSUVASTATIN CALCIUM [Concomitant]
     Active Substance: ROSUVASTATIN CALCIUM
  16. ASPIRIN [Concomitant]
     Active Substance: ASPIRIN
  17. OXYCODONE [Concomitant]
     Active Substance: OXYCODONE
  18. TYLENOL [Concomitant]
     Active Substance: ACETAMINOPHEN
  19. MOXIFLOXACIN [Concomitant]
     Active Substance: MOXIFLOXACIN
  20. TOBRAMYCIN [Concomitant]
     Active Substance: TOBRAMYCIN
  21. TRAMADOL [Concomitant]
     Active Substance: TRAMADOL
  22. TIMOLOL MALEATE [Concomitant]
     Active Substance: TIMOLOL MALEATE

REACTIONS (7)
  - Product dose omission issue [Not Recovered/Not Resolved]
  - Eye pain [Not Recovered/Not Resolved]
  - Therapy interrupted [Unknown]
  - Ocular discomfort [Unknown]
  - Photophobia [Not Recovered/Not Resolved]
  - Lacrimation increased [Not Recovered/Not Resolved]
  - Eye irritation [Unknown]

NARRATIVE: CASE EVENT DATE: 20240711
